FAERS Safety Report 5127993-1 (Version None)
Quarter: 2006Q4

REPORT INFORMATION
  Report Type: 
  Country: None (occurrence: None)
  Receive Date: 20061010
  Receipt Date: 20060928
  Transmission Date: 20070319
  Serious: Yes (Death)
  Sender: FDA-Public Use
  Company Number: 2006-05168

PATIENT
  Age: 48 Year
  Sex: Male

DRUGS (2)
  1. NAPROXEN [Suspect]
     Dosage: 375 MG, TID; ORAL
     Route: 048
  2. TENOFOVIR (TENOFOVIR) [Suspect]

REACTIONS (3)
  - DRUG INTERACTION POTENTIATION [None]
  - RENAL FAILURE ACUTE [None]
  - RENAL TUBULAR NECROSIS [None]
